FAERS Safety Report 7168122-2 (Version None)
Quarter: 2010Q4

REPORT INFORMATION
  Report Type: 
  Country: None (occurrence: None)
  Receive Date: 20101202
  Receipt Date: 20101124
  Transmission Date: 20110411
  Serious: Yes (Other)
  Sender: FDA-Public Use
  Company Number: CRC-10-215

PATIENT
  Sex: Female

DRUGS (4)
  1. OXALIPLATIN [Suspect]
     Indication: COLON CANCER METASTATIC
  2. ELOXATIN [Suspect]
     Indication: COLON CANCER METASTATIC
  3. AVASTIN [Suspect]
     Indication: COLON CANCER METASTATIC
  4. FLUOROURACIL [Suspect]
     Indication: COLON CANCER METASTATIC

REACTIONS (2)
  - DIALYSIS [None]
  - RENAL FAILURE [None]
